FAERS Safety Report 15359211 (Version 1)
Quarter: 2018Q3

REPORT INFORMATION
  Report Type: Spontaneous
  Country: JP (occurrence: JP)
  Receive Date: 20180907
  Receipt Date: 20180907
  Transmission Date: 20181010
  Serious: Yes (Death, Other)
  Sender: FDA-Public Use
  Company Number: PHHY2018JP087823

PATIENT
  Age: 64 Year
  Sex: Male

DRUGS (3)
  1. GIMERACIL;OTERACIL;TEGAFUR [Suspect]
     Active Substance: GIMERACIL\OTERACIL\TEGAFUR
     Indication: LUNG ADENOCARCINOMA
     Dosage: 100 MG, QD
     Route: 065
  2. PACLITAXEL. [Suspect]
     Active Substance: PACLITAXEL
     Indication: LUNG ADENOCARCINOMA
     Dosage: 200 MG/M2, UNK
     Route: 065
  3. CARBOPLATIN. [Suspect]
     Active Substance: CARBOPLATIN
     Indication: LUNG ADENOCARCINOMA
     Dosage: UNK, Q3W
     Route: 065

REACTIONS (5)
  - Lung adenocarcinoma [Fatal]
  - Gastritis bacterial [Recovering/Resolving]
  - Nausea [Unknown]
  - Haematemesis [Unknown]
  - Malignant neoplasm progression [Fatal]
